FAERS Safety Report 23106086 (Version 3)
Quarter: 2024Q1

REPORT INFORMATION
  Report Type: Other
  Country: CA (occurrence: CA)
  Receive Date: 20231025
  Receipt Date: 20240326
  Transmission Date: 20240410
  Serious: Yes (Hospitalization, Other)
  Sender: FDA-Public Use
  Company Number: CA-INTERCEPT-PMOCA2017000776

PATIENT
  Age: 57 Year
  Sex: Female

DRUGS (37)
  1. OCALIVA [Suspect]
     Active Substance: OBETICHOLIC ACID
     Indication: Primary biliary cholangitis
     Dosage: 5 MG, QD
     Route: 048
     Dates: start: 201707
  2. OCALIVA [Suspect]
     Active Substance: OBETICHOLIC ACID
     Dosage: 5 MG, QD
     Route: 048
     Dates: start: 20170802
  3. OCALIVA [Suspect]
     Active Substance: OBETICHOLIC ACID
     Dosage: 10 MG, QD
     Route: 048
     Dates: start: 20180102
  4. OCALIVA [Suspect]
     Active Substance: OBETICHOLIC ACID
     Dosage: 10 MG, QD
     Route: 048
     Dates: start: 20180109
  5. OCALIVA [Suspect]
     Active Substance: OBETICHOLIC ACID
     Dosage: 5 MG, QD (BEFORE BREAKFAST)
     Route: 048
     Dates: start: 202211
  6. URSO [Concomitant]
     Active Substance: URSODIOL
     Indication: Primary biliary cholangitis
     Dosage: 1500 MG, QD (INADEQUATE RESPONSE AS MONOTHERAPY)
     Dates: start: 201401
  7. URSO [Concomitant]
     Active Substance: URSODIOL
     Dosage: 1000 MG, QD
  8. AZATHIOPRINE [Concomitant]
     Active Substance: AZATHIOPRINE
     Indication: Autoimmune hepatitis
     Dosage: 150 MG, QD(50MG X3 OD)
     Dates: start: 2014
  9. AZATHIOPRINE [Concomitant]
     Active Substance: AZATHIOPRINE
     Dosage: UNK
  10. NORVASC [Concomitant]
     Active Substance: AMLODIPINE BESYLATE
     Indication: Hypertension
     Dosage: 5 MG, QD
  11. NORVASC [Concomitant]
     Active Substance: AMLODIPINE BESYLATE
     Dosage: 10 MG
  12. CIPROFLOXACIN HYDROCHLORIDE [Concomitant]
     Active Substance: CIPROFLOXACIN HYDROCHLORIDE
     Indication: Product used for unknown indication
     Dosage: UNK, QD
  13. CIPROFLOXACIN HYDROCHLORIDE [Concomitant]
     Active Substance: CIPROFLOXACIN HYDROCHLORIDE
     Dosage: UNK, QD
  14. CIPROFLOXACIN HYDROCHLORIDE [Concomitant]
     Active Substance: CIPROFLOXACIN HYDROCHLORIDE
     Dosage: UNK, QD
  15. CIPROFLOXACIN HYDROCHLORIDE [Concomitant]
     Active Substance: CIPROFLOXACIN HYDROCHLORIDE
     Dosage: UNK, QD
  16. HYDROCHLOROTHIAZIDE [Concomitant]
     Active Substance: HYDROCHLOROTHIAZIDE
     Indication: Hypertension
     Dosage: 12.5 MG
  17. HYDROCHLOROTHIAZIDE [Concomitant]
     Active Substance: HYDROCHLOROTHIAZIDE
     Dosage: 25 MG
  18. LANTUS [Concomitant]
     Active Substance: INSULIN GLARGINE
     Indication: Diabetes mellitus
     Dosage: 38 UNITS, UNK
  19. LANTUS [Concomitant]
     Active Substance: INSULIN GLARGINE
     Dosage: 38 UNIT
  20. LANTUS [Concomitant]
     Active Substance: INSULIN GLARGINE
     Dosage: 38 UNIT
  21. LANTUS [Concomitant]
     Active Substance: INSULIN GLARGINE
     Dosage: 38 UNIT
  22. GLICLAZIDE [Concomitant]
     Active Substance: GLICLAZIDE
     Indication: Diabetes mellitus
     Dosage: 60 MG, QD
  23. INSULIN NOS [Concomitant]
     Active Substance: INSULIN NOS
     Indication: Product used for unknown indication
     Dosage: UNK
  24. INSULIN NOS [Concomitant]
     Active Substance: INSULIN NOS
     Dosage: UNK
  25. INSULIN NOS [Concomitant]
     Active Substance: INSULIN NOS
     Dosage: UNK
  26. INSULIN NOS [Concomitant]
     Active Substance: INSULIN NOS
     Dosage: UNK
  27. DOXEPIN [Concomitant]
     Active Substance: DOXEPIN
     Indication: Pruritus
     Dosage: 30 MG (10MG X3 PILLS)
  28. ACTONEL [Concomitant]
     Active Substance: RISEDRONATE SODIUM
     Indication: Product used for unknown indication
     Dosage: UNK
     Dates: start: 201807
  29. JARDIANCE [Concomitant]
     Active Substance: EMPAGLIFLOZIN
     Indication: Diabetes mellitus
     Dosage: 10 MG, QD
  30. VITAMIN D [Concomitant]
     Active Substance: VITAMIN D NOS
     Indication: Osteopenia
     Dosage: UNK
  31. VITAMIN D [Concomitant]
     Active Substance: VITAMIN D NOS
     Indication: Serum serotonin decreased
     Dosage: UNK
  32. VITAMIN D [Concomitant]
     Active Substance: VITAMIN D NOS
     Dosage: UNK
  33. VITAMIN D [Concomitant]
     Active Substance: VITAMIN D NOS
     Dosage: UNK
  34. CITALOPRAM [Concomitant]
     Active Substance: CITALOPRAM\CITALOPRAM HYDROBROMIDE
     Indication: Depression
     Dosage: UNK
  35. CITALOPRAM [Concomitant]
     Active Substance: CITALOPRAM\CITALOPRAM HYDROBROMIDE
     Dosage: UNK
  36. CITALOPRAM [Concomitant]
     Active Substance: CITALOPRAM\CITALOPRAM HYDROBROMIDE
     Dosage: UNK
  37. CITALOPRAM [Concomitant]
     Active Substance: CITALOPRAM\CITALOPRAM HYDROBROMIDE
     Dosage: UNK

REACTIONS (19)
  - Diabetes mellitus [Not Recovered/Not Resolved]
  - Model for end stage liver disease score increased [Unknown]
  - Infection [Unknown]
  - Malaise [Not Recovered/Not Resolved]
  - Serum serotonin decreased [Not Recovered/Not Resolved]
  - Brain fog [Not Recovered/Not Resolved]
  - Migraine [Not Recovered/Not Resolved]
  - Blood bilirubin abnormal [Unknown]
  - Insomnia [Not Recovered/Not Resolved]
  - Stress [Not Recovered/Not Resolved]
  - Gamma-glutamyltransferase abnormal [Unknown]
  - Blood alkaline phosphatase abnormal [Unknown]
  - Asthenia [Not Recovered/Not Resolved]
  - Abdominal discomfort [Not Recovered/Not Resolved]
  - Fatigue [Not Recovered/Not Resolved]
  - Pruritus [Not Recovered/Not Resolved]
  - Product dose omission issue [Not Recovered/Not Resolved]
  - Extra dose administered [Recovered/Resolved]
  - Therapy interrupted [Unknown]

NARRATIVE: CASE EVENT DATE: 20170801
